FAERS Safety Report 9455344 (Version 2)
Quarter: 2013Q3

REPORT INFORMATION
  Report Type: Report from Study
  Country: US (occurrence: US)
  Receive Date: 20130813
  Receipt Date: 20130919
  Transmission Date: 20140515
  Serious: Yes (Other)
  Sender: FDA-Public Use
  Company Number: PHEH2013US016550

PATIENT
  Age: 61 Year
  Sex: Female

DRUGS (7)
  1. AFINITOR [Suspect]
     Indication: METASTASES TO BREAST
     Dosage: 10 MG, DAILY
     Route: 048
     Dates: start: 20130704, end: 20130722
  2. PAROXETINE [Concomitant]
  3. SIMVASTATIN [Concomitant]
  4. MELOXICAM [Concomitant]
  5. AMBIEN [Concomitant]
  6. TRAMADOL [Concomitant]
  7. EXEMESTANE [Concomitant]

REACTIONS (10)
  - Skin exfoliation [Recovering/Resolving]
  - Swelling [Recovering/Resolving]
  - Rash pruritic [Recovered/Resolved]
  - Pyrexia [Recovering/Resolving]
  - Stomatitis [Recovering/Resolving]
  - Skin hyperpigmentation [Not Recovered/Not Resolved]
  - Musculoskeletal pain [Unknown]
  - Bone pain [Recovering/Resolving]
  - Diarrhoea [Recovered/Resolved]
  - Acne [Recovering/Resolving]
